FAERS Safety Report 10932429 (Version 1)
Quarter: 2015Q1

REPORT INFORMATION
  Report Type: Spontaneous
  Country: US (occurrence: US)
  Receive Date: 20150320
  Receipt Date: 20150320
  Transmission Date: 20150721
  Serious: Yes (Hospitalization)
  Sender: FDA-Public Use
  Company Number: US-BRISTOL-MYERS SQUIBB COMPANY-BMS-2015-015653

PATIENT
  Sex: Male

DRUGS (3)
  1. ABILIFY [Suspect]
     Active Substance: ARIPIPRAZOLE
     Indication: SCHIZOPHRENIA, PARANOID TYPE
     Dosage: 30 MG, QD
     Route: 048
  2. THORAZINE [Suspect]
     Active Substance: CHLORPROMAZINE
     Indication: SCHIZOPHRENIA, PARANOID TYPE
     Dosage: 50 MG, UNK
     Route: 048
  3. THORAZINE [Suspect]
     Active Substance: CHLORPROMAZINE
     Indication: SLEEP DISORDER

REACTIONS (2)
  - Psychotic disorder [Recovering/Resolving]
  - Insomnia [Recovering/Resolving]
